FAERS Safety Report 4766384-X (Version None)
Quarter: 2005Q3

REPORT INFORMATION
  Report Type: 
  Country: None (occurrence: None)
  Receive Date: 20050912
  Receipt Date: 20050908
  Transmission Date: 20060218
  Serious: Yes (Other)
  Sender: FDA-Public Use
  Company Number: IE-SANOFI-SYNTHELABO-A01200506107

PATIENT
  Sex: Female

DRUGS (2)
  1. ELOXATIN [Suspect]
     Route: 041
  2. PHENYTOIN [Interacting]

REACTIONS (5)
  - DRUG INTERACTION [None]
  - DRUG LEVEL INCREASED [None]
  - DRUG TOXICITY [None]
  - GAIT DISTURBANCE [None]
  - NEUTROPENIA [None]
